FAERS Safety Report 8209337-1 (Version None)
Quarter: 2012Q1

REPORT INFORMATION
  Report Type: 
  Country: None (occurrence: None)
  Receive Date: 20120314
  Receipt Date: 20120306
  Transmission Date: 20120608
  Serious: Yes (Hospitalization)
  Sender: FDA-Public Use
  Company Number: US-BAYER-2010-002207

PATIENT
  Age: 29 Year
  Sex: Female
  Weight: 97.052 kg

DRUGS (2)
  1. YAZ [Suspect]
     Dosage: UNK
     Dates: start: 20070501, end: 20090301
  2. YASMIN [Suspect]
     Dosage: UNK
     Dates: start: 20070501, end: 20090301

REACTIONS (2)
  - MENTAL DISORDER [None]
  - CEREBROVASCULAR ACCIDENT [None]
